FAERS Safety Report 10019093 (Version 2)
Quarter: 2014Q2

REPORT INFORMATION
  Report Type: Spontaneous
  Country: BR (occurrence: BR)
  Receive Date: 20140318
  Receipt Date: 20140410
  Transmission Date: 20141212
  Serious: No
  Sender: FDA-Public Use
  Company Number: BR-009507513-1403BRA007895

PATIENT
  Sex: Female

DRUGS (1)
  1. NASONEX [Suspect]
     Indication: RHINITIS ALLERGIC
     Dosage: ONE PUFF EACH NOSTRILS DAILY
     Route: 045

REACTIONS (2)
  - Epistaxis [Recovered/Resolved]
  - Dysphonia [Recovered/Resolved]
